FAERS Safety Report 7381521-9 (Version None)
Quarter: 2011Q1

REPORT INFORMATION
  Report Type: 
  Country: None (occurrence: None)
  Receive Date: 20110329
  Receipt Date: 20110322
  Transmission Date: 20110831
  Serious: Yes (Other)
  Sender: FDA-Public Use
  Company Number: JP-MERCK-1103USA00102

PATIENT
  Age: 62 Year
  Sex: Female

DRUGS (2)
  1. ACTOS [Concomitant]
     Indication: TYPE 2 DIABETES MELLITUS
     Route: 065
     Dates: start: 20091105, end: 20100525
  2. JANUVIA [Suspect]
     Indication: TYPE 2 DIABETES MELLITUS
     Route: 048
     Dates: start: 20091219, end: 20110218

REACTIONS (1)
  - PANCREATITIS ACUTE [None]
